FAERS Safety Report 4859912-7 (Version None)
Quarter: 2005Q4

REPORT INFORMATION
  Report Type: 
  Country: None (occurrence: None)
  Receive Date: 20051219
  Receipt Date: 20051117
  Transmission Date: 20060501
  Serious: Yes (Other)
  Sender: FDA-Public Use
  Company Number: PHBS2005JP17150

PATIENT

DRUGS (1)
  1. VOLTAREN [Suspect]
     Dosage: UNK, UNK
     Route: 048

REACTIONS (1)
  - BLOOD ALKALINE PHOSPHATASE INCREASED [None]
